FAERS Safety Report 15574388 (Version 1)
Quarter: 2018Q4

REPORT INFORMATION
  Report Type: Spontaneous
  Country: US (occurrence: US)
  Receive Date: 20181031
  Receipt Date: 20181031
  Transmission Date: 20190205
  Serious: Yes (Other)
  Sender: FDA-Public Use
  Company Number: None

PATIENT
  Sex: Female
  Weight: 77.85 kg

DRUGS (1)
  1. NEXPLANON [Suspect]
     Active Substance: ETONOGESTREL
     Indication: CONTRACEPTION
     Dosage: ?          QUANTITY:1 68MG;OTHER FREQUENCY:INSERTED FOR 5 YRS;?
     Route: 058
     Dates: start: 20180103

REACTIONS (9)
  - Fatigue [None]
  - Menorrhagia [None]
  - Nausea [None]
  - Amenorrhoea [None]
  - Headache [None]
  - Back pain [None]
  - Loss of consciousness [None]
  - Muscle spasms [None]
  - Dizziness [None]
